FAERS Safety Report 6989226-0 (Version None)
Quarter: 2010Q3

REPORT INFORMATION
  Report Type: 
  Country: None (occurrence: None)
  Receive Date: 20100916
  Receipt Date: 20091014
  Transmission Date: 20110219
  Serious: Yes (Other)
  Sender: FDA-Public Use
  Company Number: CA-PFIZER INC-2009259982

PATIENT
  Sex: Female
  Weight: 71 kg

DRUGS (6)
  1. LYRICA [Suspect]
     Dosage: 75 MG, 2X/DAY
     Dates: start: 20070401
  2. LYRICA [Suspect]
     Dosage: 75MG IN THE MORNING, 150MG IN THE EVENING
     Dates: start: 20081201
  3. TRAMADOL HYDROCHLORIDE AND ACETAMINOPHEN [Concomitant]
     Dosage: UNK
  4. BOTOX [Concomitant]
     Dosage: UNK
  5. OGEN [Concomitant]
     Indication: MENOPAUSE
     Dosage: 0.625, UNK
     Dates: start: 20080101
  6. PROVERA [Concomitant]
     Indication: HOT FLUSH
     Dosage: 2.5 MG, UNK
     Dates: start: 20080101

REACTIONS (3)
  - CORNEAL OEDEMA [None]
  - MENOPAUSE [None]
  - VAGINAL HAEMORRHAGE [None]
